FAERS Safety Report 8359718-0 (Version None)
Quarter: 2012Q2

REPORT INFORMATION
  Report Type: 
  Country: None (occurrence: None)
  Receive Date: 20120515
  Receipt Date: 20120502
  Transmission Date: 20120825
  Serious: Yes (Hospitalization)
  Sender: FDA-Public Use
  Company Number: NL-JNJFOC-20120510103

PATIENT
  Sex: Female

DRUGS (7)
  1. PAROXETINE HCL [Concomitant]
     Route: 065
     Dates: start: 20040601
  2. CETIRIZINE HYDROCHLORIDE [Suspect]
     Route: 048
  3. CETIRIZINE HYDROCHLORIDE [Suspect]
     Indication: SEASONAL ALLERGY
     Route: 048
     Dates: start: 20110601, end: 20110701
  4. ZOMIG [Concomitant]
     Route: 065
     Dates: start: 19980101
  5. LIVOCAB [Concomitant]
     Route: 065
     Dates: start: 20080101
  6. METOPROLOL SUCCINATE [Suspect]
     Indication: TACHYCARDIA
     Route: 065
     Dates: start: 20110201, end: 20110801
  7. BECLOMETHASONE DIPROPIONATE [Concomitant]
     Route: 065
     Dates: start: 19860101

REACTIONS (2)
  - TACHYCARDIA [None]
  - DYSPNOEA [None]
